FAERS Safety Report 9682764 (Version 4)
Quarter: 2014Q1

REPORT INFORMATION
  Report Type: Spontaneous
  Country: BR (occurrence: BR)
  Receive Date: 20131112
  Receipt Date: 20140221
  Transmission Date: 20141002
  Serious: Yes (Other)
  Sender: FDA-Public Use
  Company Number: BR-JNJFOC-20131103421

PATIENT
  Age: 62 Year
  Sex: Female
  Weight: 69 kg

DRUGS (8)
  1. REMICADE [Suspect]
     Indication: RHEUMATOID ARTHRITIS
     Route: 042
     Dates: start: 20131105, end: 20131219
  2. REMICADE [Suspect]
     Indication: RHEUMATOID ARTHRITIS
     Route: 042
     Dates: start: 201308
  3. REMICADE [Suspect]
     Indication: RHEUMATOID ARTHRITIS
     Route: 042
     Dates: start: 201110
  4. REMICADE [Suspect]
     Indication: RHEUMATOID ARTHRITIS
     Route: 042
     Dates: start: 2012
  5. METHOTREXATE [Concomitant]
     Indication: RHEUMATOID ARTHRITIS
     Route: 065
  6. FOLIC ACID [Concomitant]
     Indication: RHEUMATOID ARTHRITIS
     Route: 065
  7. OMEPRAZOLE [Concomitant]
     Indication: ACIDOSIS
     Route: 065
  8. OSTEONUTRI [Concomitant]
     Indication: OSTEOARTHRITIS
     Route: 065

REACTIONS (5)
  - Osteopenia [Recovering/Resolving]
  - Renal disorder [Unknown]
  - Treatment failure [Not Recovered/Not Resolved]
  - Cardiac function test abnormal [Unknown]
  - Weight decreased [Not Recovered/Not Resolved]
